FAERS Safety Report 12069023 (Version 1)
Quarter: 2016Q1

REPORT INFORMATION
  Report Type: Report from Study
  Country: ES (occurrence: ES)
  Receive Date: 20160211
  Receipt Date: 20160211
  Transmission Date: 20160526
  Serious: Yes (Hospitalization, Other)
  Sender: FDA-Public Use
  Company Number: ES-PFIZER INC-2016072007

PATIENT
  Age: 55 Year
  Sex: Male

DRUGS (9)
  1. TEICOPLANIN [Concomitant]
     Active Substance: TEICOPLANIN
     Indication: UROSEPSIS
     Dosage: 400 MG
     Route: 042
     Dates: start: 20140702, end: 20140710
  2. BEMIPARINA [Concomitant]
     Active Substance: BEMIPARIN SODIUM
     Indication: THROMBOSIS PROPHYLAXIS
     Dosage: 2500 IU, DAILY
     Route: 058
     Dates: start: 20140701
  3. PARACETAMOL [Concomitant]
     Active Substance: ACETAMINOPHEN
     Indication: PAIN
     Dosage: 1 G, 3X/DAY (1 G EVERY 8 HOURS)
     Route: 042
     Dates: start: 20140701
  4. TAZOCEL [Suspect]
     Active Substance: PIPERACILLIN SODIUM\TAZOBACTAM SODIUM
     Indication: UROSEPSIS
     Dosage: 4 G, 3X/DAY
     Route: 042
     Dates: start: 20140701, end: 20140711
  5. CALCITRIOL. [Concomitant]
     Active Substance: CALCITRIOL
     Dosage: 0.25 UG 4X/WEEK (MONDAYS, WEDNESDAYS, FRIDAYS AND SATURDAYS)
     Route: 048
     Dates: start: 20140704
  6. SPIRONOLACTONE. [Concomitant]
     Active Substance: SPIRONOLACTONE
     Indication: CARDIAC FAILURE CONGESTIVE
     Dosage: 25 MG 1X/DAY
     Route: 048
     Dates: start: 20140701
  7. LEVOTHYROXINE. [Concomitant]
     Active Substance: LEVOTHYROXINE
     Indication: HYPOTHYROIDISM
     Dosage: 100 UG 1X/DAY
     Route: 048
     Dates: start: 20140701
  8. PANTOPRAZOLE [Concomitant]
     Active Substance: PANTOPRAZOLE SODIUM
     Dosage: 40 MG 1X/DAY (1 AMPOULE)
     Route: 042
     Dates: start: 20140701
  9. FLUCONAZOLE. [Concomitant]
     Active Substance: FLUCONAZOLE
     Indication: UROSEPSIS
     Dosage: 400 MG
     Route: 042
     Dates: start: 20140702, end: 20140707

REACTIONS (2)
  - Cholestasis [Recovered/Resolved]
  - Eosinophilia [Recovered/Resolved]

NARRATIVE: CASE EVENT DATE: 20140711
